FAERS Safety Report 10593043 (Version 1)
Quarter: 2014Q4

REPORT INFORMATION
  Report Type: Spontaneous
  Country: US (occurrence: None)
  Receive Date: 20141118
  Receipt Date: 20141118
  Transmission Date: 20150529
  Serious: Yes (Hospitalization)
  Sender: FDA-Public Use
  Company Number: None

PATIENT
  Sex: Female
  Weight: 45.7 kg

DRUGS (18)
  1. ABILIFY [Concomitant]
     Active Substance: ARIPIPRAZOLE
  2. CLARITIN [Concomitant]
     Active Substance: LORATADINE
  3. TACROLIMUS. [Concomitant]
     Active Substance: TACROLIMUS
  4. PROCRIT [Concomitant]
     Active Substance: ERYTHROPOIETIN
  5. SOFOSBUVIR 400MG [Suspect]
     Active Substance: SOFOSBUVIR
     Indication: HEPATITIS C
     Route: 048
     Dates: start: 20140913
  6. ASPIRIN. [Concomitant]
     Active Substance: ASPIRIN
  7. PRISTIQ EXTENDED RELEASE [Concomitant]
     Active Substance: DESVENLAFAXINE SUCCINATE
  8. MIRALAX [Concomitant]
     Active Substance: POLYETHYLENE GLYCOL 3350
  9. LOSARTAN [Concomitant]
     Active Substance: LOSARTAN
  10. TRAZODONE [Concomitant]
     Active Substance: TRAZODONE HYDROCHLORIDE
  11. CALCIUM [Concomitant]
     Active Substance: CALCIUM
  12. HYDOXYZINE HCL [Concomitant]
  13. OMEPRAZOLE. [Concomitant]
     Active Substance: OMEPRAZOLE
  14. OXYCODONE [Concomitant]
     Active Substance: OXYCODONE
  15. RIBAVIRIN. [Suspect]
     Active Substance: RIBAVIRIN
     Indication: HEPATITIS C
     Route: 048
     Dates: start: 20140913
  16. VITAMIN D [Concomitant]
     Active Substance: CHOLECALCIFEROL
  17. PLAVIX [Concomitant]
     Active Substance: CLOPIDOGREL BISULFATE
  18. FLUTICASONE NASAL [Concomitant]
     Active Substance: FLUTICASONE\FLUTICASONE PROPIONATE

REACTIONS (1)
  - Anaemia [None]

NARRATIVE: CASE EVENT DATE: 20141002
